FAERS Safety Report 6660171-3 (Version None)
Quarter: 2010Q1

REPORT INFORMATION
  Report Type: 
  Country: None (occurrence: None)
  Receive Date: 20100331
  Receipt Date: 20100316
  Transmission Date: 20100710
  Serious: No
  Sender: FDA-Public Use
  Company Number: 2009BI021364

PATIENT
  Sex: Male

DRUGS (1)
  1. TYSABRI [Suspect]
     Indication: MULTIPLE SCLEROSIS
     Route: 042
     Dates: start: 20090519

REACTIONS (8)
  - BACK PAIN [None]
  - FATIGUE [None]
  - IRRITABILITY [None]
  - MENTAL IMPAIRMENT [None]
  - MUSCULOSKELETAL PAIN [None]
  - NEURALGIA [None]
  - PAIN [None]
  - POOR QUALITY SLEEP [None]
